FAERS Safety Report 12199497 (Version 1)
Quarter: 2016Q1

REPORT INFORMATION
  Report Type: Spontaneous
  Country: US (occurrence: None)
  Receive Date: 20160321
  Receipt Date: 20160321
  Transmission Date: 20160526
  Serious: Yes (Hospitalization)
  Sender: FDA-Public Use
  Company Number: None

PATIENT
  Age: 67 Year
  Sex: Female

DRUGS (1)
  1. SCOPOLAMINE [Suspect]
     Active Substance: SCOPOLAMINE
     Dosage: PATCH

REACTIONS (4)
  - Confusional state [None]
  - Hallucination [None]
  - Insomnia [None]
  - Agitation [None]

NARRATIVE: CASE EVENT DATE: 20151001
